FAERS Safety Report 13261200 (Version 1)
Quarter: 2017Q1

REPORT INFORMATION
  Report Type: Spontaneous
  Country: US (occurrence: US)
  Receive Date: 20170222
  Receipt Date: 20170222
  Transmission Date: 20170428
  Serious: Yes (Other)
  Sender: FDA-Public Use
  Company Number: US-SA-2017SA027938

PATIENT
  Age: 75 Year
  Sex: Female

DRUGS (3)
  1. SOLOSTAR [Concomitant]
     Active Substance: DEVICE
  2. NOVOLOG [Concomitant]
     Active Substance: INSULIN ASPART
     Dosage: DOSE:6 UNIT(S)
  3. LANTUS SOLOSTAR [Suspect]
     Active Substance: INSULIN GLARGINE
     Indication: TYPE 1 DIABETES MELLITUS
     Dosage: DOSE:63 UNIT(S)
     Route: 065

REACTIONS (6)
  - Hyperglycaemia [Unknown]
  - Blindness [Unknown]
  - Fall [Unknown]
  - Injury [Unknown]
  - Drug dose omission [Unknown]
  - Wrong technique in product usage process [Unknown]
